FAERS Safety Report 8227485-7 (Version None)
Quarter: 2012Q1

REPORT INFORMATION
  Report Type: 
  Country: None (occurrence: None)
  Receive Date: 20120322
  Receipt Date: 20120319
  Transmission Date: 20120608
  Serious: Yes (Death, Other)
  Sender: FDA-Public Use
  Company Number: PHEH2012US006022

PATIENT
  Sex: Female

DRUGS (1)
  1. TOBI [Suspect]

REACTIONS (3)
  - BRONCHIECTASIS [None]
  - TERMINAL STATE [None]
  - DEATH [None]
